FAERS Safety Report 24595244 (Version 2)
Quarter: 2024Q4

REPORT INFORMATION
  Report Type: Spontaneous
  Country: US (occurrence: US)
  Receive Date: 20241108
  Receipt Date: 20241114
  Transmission Date: 20250115
  Serious: Yes (Other)
  Sender: ABBVIE
  Company Number: US-ABBVIE-5990262

PATIENT
  Age: 62 Year
  Sex: Female

DRUGS (8)
  1. HUMIRA [Suspect]
     Active Substance: ADALIMUMAB
     Indication: Ankylosing spondylitis
     Route: 058
     Dates: start: 202410
  2. REMODULIN [Suspect]
     Active Substance: TREPROSTINIL
     Indication: Pulmonary arterial hypertension
     Dosage: FORM STRENGTH: 1 MG/ML
     Route: 041
     Dates: start: 2024
  3. REMODULIN [Suspect]
     Active Substance: TREPROSTINIL
     Indication: Pulmonary arterial hypertension
     Dosage: FORM STRENGTH: 1 MG/ML?STOPPED IN 2024
     Route: 041
     Dates: start: 202407
  4. OPSUMIT [Concomitant]
     Active Substance: MACITENTAN
     Indication: Product used for unknown indication
  5. ADEMPAS [Concomitant]
     Active Substance: RIOCIGUAT
     Indication: Product used for unknown indication
  6. PREDNISONE [Suspect]
     Active Substance: PREDNISONE
     Indication: Ankylosing spondylitis
     Route: 065
     Dates: start: 202410
  7. SOTATERCEPT [Suspect]
     Active Substance: SOTATERCEPT
     Indication: Product used for unknown indication
     Route: 065
     Dates: start: 202410, end: 202410
  8. SOTATERCEPT [Suspect]
     Active Substance: SOTATERCEPT
     Indication: Product used for unknown indication
     Route: 065
     Dates: start: 202410

REACTIONS (9)
  - Ankylosing spondylitis [Unknown]
  - Dyspnoea [Recovered/Resolved]
  - Dermatitis contact [Unknown]
  - Hypotension [Unknown]
  - Dyspnoea exertional [Unknown]
  - Dizziness [Unknown]
  - Hypotension [Recovered/Resolved]
  - Night sweats [Unknown]
  - Skin irritation [Unknown]

NARRATIVE: CASE EVENT DATE: 20240101
